FAERS Safety Report 9155580 (Version 2)
Quarter: 2013Q3

REPORT INFORMATION
  Report Type: Spontaneous
  Country: BE (occurrence: BE)
  Receive Date: 20130311
  Receipt Date: 20130709
  Transmission Date: 20140515
  Serious: Yes (Death, Life-Threatening)
  Sender: FDA-Public Use
  Company Number: BE-GLAXOSMITHKLINE-B0857299A

PATIENT
  Age: 87 Year
  Sex: Male

DRUGS (12)
  1. COMBODART [Suspect]
     Indication: BENIGN PROSTATIC HYPERPLASIA
     Route: 065
     Dates: start: 20111120, end: 20130427
  2. TAMSULOSIN [Concomitant]
     Indication: PRODUCT USED FOR UNKNOWN INDICATION
     Dosage: .4MG PER DAY
     Route: 065
  3. LOSEC [Concomitant]
     Indication: GASTRIC DISORDER
     Dosage: 40MG PER DAY
     Route: 065
     Dates: start: 20111120, end: 20130427
  4. GLURENORM [Concomitant]
     Indication: DIABETES MELLITUS
     Dosage: 2U PER DAY
     Route: 065
     Dates: start: 20020707, end: 20130427
  5. ASAFLOW [Concomitant]
     Indication: COAGULOPATHY
     Dosage: 80MG PER DAY
     Route: 065
     Dates: start: 20031001, end: 20130427
  6. EMCONCOR [Concomitant]
     Indication: BLOOD PRESSURE
     Dosage: 10MG PER DAY
     Route: 065
     Dates: start: 20031001, end: 20130427
  7. COVERSYL [Concomitant]
     Indication: BLOOD PRESSURE
     Dosage: 2.5MG PER DAY
     Route: 065
     Dates: start: 20031001, end: 20130427
  8. ZOCOR [Concomitant]
     Indication: BLOOD CHOLESTEROL
     Dosage: 40MG PER DAY
     Route: 065
     Dates: start: 20061028, end: 20130401
  9. PROLOPA [Concomitant]
     Indication: PARKINSONISM
     Dosage: 125MG TWICE PER DAY
     Route: 065
     Dates: start: 20111120, end: 20130406
  10. THEOLAIR [Concomitant]
     Indication: BRONCHOSPASM
     Dosage: 250MG TWICE PER DAY
     Route: 065
     Dates: start: 20100627, end: 20130406
  11. ACETYLCYSTEINE [Concomitant]
     Dosage: 600MG PER DAY
     Route: 065
     Dates: start: 20100110
  12. MOVICOL [Concomitant]
     Indication: CONSTIPATION
     Route: 065

REACTIONS (3)
  - Urinary incontinence [Not Recovered/Not Resolved]
  - Urge incontinence [Unknown]
  - Bladder neoplasm [Fatal]
